FAERS Safety Report 5546029-1 (Version None)
Quarter: 2007Q4

REPORT INFORMATION
  Report Type: 
  Country: None (occurrence: None)
  Receive Date: 20071211
  Receipt Date: 20070831
  Transmission Date: 20080405
  Serious: No
  Sender: FDA-Public Use
  Company Number: US-BRISTOL-MYERS SQUIBB COMPANY-13861653

PATIENT
  Age: 21 Year
  Sex: Female

DRUGS (4)
  1. EMSAM [Suspect]
     Indication: BIPOLAR DISORDER
     Route: 062
     Dates: start: 20070724
  2. DEPAKOTE [Concomitant]
  3. LITHIUM CARBONATE [Concomitant]
     Route: 048
  4. ROZEREM [Concomitant]
     Route: 048

REACTIONS (1)
  - APPLICATION SITE REACTION [None]
